FAERS Safety Report 4978332-8 (Version None)
Quarter: 2006Q2

REPORT INFORMATION
  Report Type: 
  Country: None (occurrence: None)
  Receive Date: 20060417
  Receipt Date: 20060331
  Transmission Date: 20061013
  Serious: Yes (Other)
  Sender: FDA-Public Use
  Company Number: DSA_27844_2006

PATIENT
  Age: 53 Year
  Sex: Female
  Weight: 61.2356 kg

DRUGS (1)
  1. VASOTEC [Suspect]
     Indication: HYPERTENSION
     Dosage: 20 MG BID PO
     Route: 048
     Dates: start: 20041130, end: 20060207

REACTIONS (19)
  - ALOPECIA [None]
  - ARTHRALGIA [None]
  - BALANCE DISORDER [None]
  - DISTURBANCE IN ATTENTION [None]
  - DIZZINESS [None]
  - DYSPNOEA [None]
  - HEART RATE INCREASED [None]
  - IMPAIRED DRIVING ABILITY [None]
  - LIBIDO DECREASED [None]
  - MEMORY IMPAIRMENT [None]
  - NAIL DISORDER [None]
  - NECK PAIN [None]
  - NERVOUSNESS [None]
  - RESTLESSNESS [None]
  - SHOULDER PAIN [None]
  - SLEEP DISORDER [None]
  - SLUGGISHNESS [None]
  - TINNITUS [None]
  - VISUAL ACUITY REDUCED [None]
